FAERS Safety Report 4446723-X (Version None)
Quarter: 2004Q3

REPORT INFORMATION
  Report Type: 
  Country: None (occurrence: None)
  Receive Date: 20040910
  Receipt Date: 20040826
  Transmission Date: 20050211
  Serious: Yes (Other)
  Sender: FDA-Public Use
  Company Number: 2004060002

PATIENT
  Sex: Female

DRUGS (3)
  1. NEURONTIN [Suspect]
     Indication: ILL-DEFINED DISORDER
     Dosage: 200 MG (200 MG, 1 IN 1 D)
  2. TOLTERODINE (TOLTERODINE) [Concomitant]
  3. CARBAMAZEPINE [Concomitant]

REACTIONS (1)
  - CIRCULATORY COLLAPSE [None]
